FAERS Safety Report 23820299 (Version 2)
Quarter: 2024Q2

REPORT INFORMATION
  Report Type: Spontaneous
  Country: NL (occurrence: NL)
  Receive Date: 20240506
  Receipt Date: 20240516
  Transmission Date: 20240716
  Serious: Yes (Hospitalization)
  Sender: FDA-Public Use
  Company Number: NL-ABBVIE-5733920

PATIENT
  Sex: Male

DRUGS (7)
  1. ADALIMUMAB [Suspect]
     Active Substance: ADALIMUMAB\ISOPROPYL ALCOHOL
     Indication: Crohn^s disease
     Dosage: UNK
     Route: 058
  2. AZATHIOPRINE [Suspect]
     Active Substance: AZATHIOPRINE
     Indication: Crohn^s disease
     Dosage: UNK
     Route: 065
  3. ABATACEPT [Suspect]
     Active Substance: ABATACEPT
     Indication: Crohn^s disease
     Dosage: UNK
     Route: 065
  4. REMICADE [Suspect]
     Active Substance: INFLIXIMAB
     Indication: Crohn^s disease
     Dosage: UNK
     Route: 065
  5. STELARA [Suspect]
     Active Substance: USTEKINUMAB
     Indication: Crohn^s disease
     Dosage: UNK
     Route: 065
  6. UPADACITINIB [Suspect]
     Active Substance: UPADACITINIB
     Indication: Crohn^s disease
     Dosage: 15 DF
     Route: 048
     Dates: start: 202306, end: 202402
  7. VEDOLIZUMAB [Suspect]
     Active Substance: VEDOLIZUMAB
     Indication: Crohn^s disease
     Dosage: UNK
     Route: 065

REACTIONS (15)
  - Colectomy total [Not Recovered/Not Resolved]
  - Ileostomy [Unknown]
  - Ileostomy [Unknown]
  - Ileectomy [Unknown]
  - Ileectomy [Not Recovered/Not Resolved]
  - Intestinal anastomosis [Unknown]
  - Intestinal fistula [Recovered/Resolved]
  - Crohn^s disease [Unknown]
  - Malaise [Recovered/Resolved]
  - Drug ineffective [Not Recovered/Not Resolved]
  - Drug ineffective [Not Recovered/Not Resolved]
  - Drug ineffective [Not Recovered/Not Resolved]
  - Drug ineffective [Not Recovered/Not Resolved]
  - Drug ineffective [Not Recovered/Not Resolved]
  - Therapeutic product effect decreased [Not Recovered/Not Resolved]

NARRATIVE: CASE EVENT DATE: 20040101
